FAERS Safety Report 10243823 (Version 1)
Quarter: 2014Q2

REPORT INFORMATION
  Report Type: Spontaneous
  Country: FR (occurrence: FR)
  Receive Date: 20140618
  Receipt Date: 20140618
  Transmission Date: 20141212
  Serious: Yes (Other)
  Sender: FDA-Public Use
  Company Number: FR-ASTRAZENECA-2014SE44073

PATIENT
  Age: 85 Year
  Sex: Female

DRUGS (3)
  1. INEXIUM [Suspect]
     Route: 048
  2. AUGMENTIN [Interacting]
     Indication: BRONCHITIS
     Route: 065
  3. SEVERAL DRUGS [Concomitant]

REACTIONS (5)
  - Drug interaction [Unknown]
  - Candida infection [Recovered/Resolved]
  - Gastrointestinal disorder [Unknown]
  - Malnutrition [Unknown]
  - Fatigue [Unknown]
